FAERS Safety Report 13943379 (Version 1)
Quarter: 2017Q3

REPORT INFORMATION
  Report Type: Spontaneous
  Country: DE (occurrence: DE)
  Receive Date: 20170907
  Receipt Date: 20170907
  Transmission Date: 20171128
  Serious: Yes (Death, Hospitalization, Other)
  Sender: FDA-Public Use
  Company Number: GXKR2017DE004453

PATIENT
  Sex: Female
  Weight: 85 kg

DRUGS (1)
  1. METHADONE [Suspect]
     Active Substance: METHADONE HYDROCHLORIDE
     Indication: CERVIX CARCINOMA
     Route: 065

REACTIONS (6)
  - Overdose [Unknown]
  - Septic shock [Fatal]
  - Urinary retention [Unknown]
  - Disturbance in attention [Unknown]
  - Urosepsis [Fatal]
  - Renal function test abnormal [Unknown]
